FAERS Safety Report 7229929-6 (Version None)
Quarter: 2011Q1

REPORT INFORMATION
  Report Type: 
  Country: None (occurrence: None)
  Receive Date: 20110117
  Receipt Date: 20110113
  Transmission Date: 20110831
  Serious: Yes (Other)
  Sender: FDA-Public Use
  Company Number: US-PFIZER INC-2011009302

PATIENT
  Sex: Female

DRUGS (1)
  1. CHANTIX [Suspect]
     Dosage: UNK

REACTIONS (8)
  - FLATULENCE [None]
  - DYSPEPSIA [None]
  - NAUSEA [None]
  - SPLENOMEGALY [None]
  - HEPATOMEGALY [None]
  - CHEST DISCOMFORT [None]
  - CHEST PAIN [None]
  - URINE ODOUR ABNORMAL [None]
